FAERS Safety Report 9491035 (Version 2)
Quarter: 2013Q4

REPORT INFORMATION
  Report Type: Spontaneous
  Country: AU (occurrence: AU)
  Receive Date: 20130830
  Receipt Date: 20131004
  Transmission Date: 20140711
  Serious: Yes (Hospitalization)
  Sender: FDA-Public Use
  Company Number: AU-B.I. PHARMACEUTICALS,INC./RIDGEFIELD-2013-AU-01053AU

PATIENT
  Age: 75 Year
  Sex: Male
  Weight: 78 kg

DRUGS (6)
  1. PRADAXA [Suspect]
     Indication: ATRIAL FIBRILLATION
     Dosage: 220 MG
     Dates: start: 20111014, end: 20130610
  2. BICOR [Concomitant]
  3. GOPTEN [Concomitant]
  4. LIPITOR [Concomitant]
  5. SPIRONOLACTONE [Concomitant]
  6. FRUSEMIDE [Concomitant]

REACTIONS (2)
  - Arterial thrombosis [Recovered/Resolved]
  - Arthritis [Unknown]
